FAERS Safety Report 26178713 (Version 1)
Quarter: 2025Q4

REPORT INFORMATION
  Report Type: Spontaneous
  Country: EU (occurrence: EU)
  Receive Date: 20251219
  Receipt Date: 20251219
  Transmission Date: 20260117
  Serious: Yes (Other)
  Sender: TAKEDA
  Company Number: None

PATIENT
  Age: 54 Year
  Sex: Male
  Weight: 83 kg

DRUGS (5)
  1. LANSOPRAZOLE [Suspect]
     Active Substance: LANSOPRAZOLE
     Indication: Tuberculoma
     Dosage: 30 MILLIGRAM, QD
  2. METHOTREXATE [Suspect]
     Active Substance: METHOTREXATE
     Indication: Tuberculoma
     Dosage: 10 MILLIGRAM, 1/WEEK
  3. KARDEGIC [Suspect]
     Active Substance: ASPIRIN DL-LYSINE
     Indication: Tuberculoma
     Dosage: 75 MILLIGRAM, QD
  4. EXFORGE [Suspect]
     Active Substance: AMLODIPINE BESYLATE\VALSARTAN
     Indication: Hypertension
     Dosage: 1 DOSAGE FORM, QD
  5. INFLIXIMAB [Suspect]
     Active Substance: INFLIXIMAB
     Indication: Tuberculoma
     Dosage: 400 MILLIGRAM, Q4WEEKS
     Dates: start: 202401

REACTIONS (1)
  - Protein-losing gastroenteropathy [Not Recovered/Not Resolved]

NARRATIVE: CASE EVENT DATE: 20250428
